FAERS Safety Report 8925350 (Version 3)
Quarter: 2012Q4

REPORT INFORMATION
  Report Type: 
  Country: JP (occurrence: JP)
  Receive Date: 20121126
  Receipt Date: 20121214
  Transmission Date: 20130627
  Serious: Yes (Hospitalization, Disabling, Other)
  Sender: FDA-Public Use
  Company Number: JP-MILLENNIUM PHARMACEUTICALS, INC.-2012-08232

PATIENT

DRUGS (2)
  1. VELCADE [Suspect]
     Indication: MULTIPLE MYELOMA
     Dosage: 1.85 mg/m2, UNK
     Route: 042
     Dates: start: 20120423, end: 20120702
  2. DEXART [Concomitant]
     Indication: MULTIPLE MYELOMA
     Dosage: 13.1 mg, UNK
     Route: 042
     Dates: start: 20120224

REACTIONS (3)
  - Retinal haemorrhage [Not Recovered/Not Resolved]
  - Vitreous floaters [Not Recovered/Not Resolved]
  - Anaemia [Not Recovered/Not Resolved]
